FAERS Safety Report 7411227-9 (Version None)
Quarter: 2011Q2

REPORT INFORMATION
  Report Type: 
  Country: None (occurrence: None)
  Receive Date: 20110413
  Receipt Date: 20100409
  Transmission Date: 20111010
  Serious: Yes (Other)
  Sender: FDA-Public Use
  Company Number: US-BRISTOL-MYERS SQUIBB COMPANY-15059132

PATIENT

DRUGS (4)
  1. ANTIHISTAMINE NOS [Concomitant]
     Indication: PREMEDICATION
     Dosage: THE DAY OF INFUSION
  2. DECADRON [Concomitant]
     Route: 042
  3. ERBITUX [Suspect]
  4. DECADRON [Concomitant]
     Indication: PREMEDICATION
     Dosage: ORAL -NIGHT BEFORE ALSO IV DECADRON
     Route: 048

REACTIONS (1)
  - INFUSION RELATED REACTION [None]
